FAERS Safety Report 7349487-5 (Version None)
Quarter: 2011Q1

REPORT INFORMATION
  Report Type: 
  Country: None (occurrence: None)
  Receive Date: 20110314
  Receipt Date: 20100812
  Transmission Date: 20110831
  Serious: No
  Sender: FDA-Public Use
  Company Number: A0875577A

PATIENT
  Age: 68 Year
  Sex: Female

DRUGS (6)
  1. LIPITOR [Concomitant]
  2. ATACAND [Concomitant]
  3. ACTOS [Concomitant]
  4. AUGMENTIN XR [Suspect]
     Indication: CELLULITIS
     Dosage: 2000MG PER DAY
     Route: 048
     Dates: start: 20060101, end: 20100101
  5. SYNTHROID [Concomitant]
  6. METFORMIN [Concomitant]

REACTIONS (2)
  - DIARRHOEA [None]
  - DRUG INEFFECTIVE [None]
